FAERS Safety Report 15858733 (Version 1)
Quarter: 2019Q1

REPORT INFORMATION
  Report Type: Spontaneous
  Country: CR (occurrence: CR)
  Receive Date: 20190123
  Receipt Date: 20190123
  Transmission Date: 20190417
  Serious: Yes (Congenital Anomaly, Other)
  Sender: FDA-Public Use
  Company Number: CR-PFIZER INC-2019017118

PATIENT
  Sex: Male

DRUGS (3)
  1. DALACIN [Suspect]
     Active Substance: CLINDAMYCIN
     Indication: LIMB INJURY
  2. FENALEX [Concomitant]
     Dosage: 750 MG, DAILY
     Route: 048
     Dates: start: 20190105, end: 20190111
  3. DALACIN [Suspect]
     Active Substance: CLINDAMYCIN
     Indication: INFECTION PROPHYLAXIS
     Dosage: 600 MG, DAILY
     Route: 030
     Dates: start: 20190105

REACTIONS (5)
  - Hypertension [Unknown]
  - Skin haemorrhage [Recovered/Resolved]
  - Diabetes mellitus [Unknown]
  - Hypertensive crisis [Unknown]
  - Epistaxis [Recovered/Resolved]

NARRATIVE: CASE EVENT DATE: 20190108
